FAERS Safety Report 5071776-8 (Version None)
Quarter: 2006Q3

REPORT INFORMATION
  Report Type: 
  Country: None (occurrence: None)
  Receive Date: 20060801
  Receipt Date: 20060718
  Transmission Date: 20061208
  Serious: Yes (Hospitalization)
  Sender: FDA-Public Use
  Company Number: 2006-153

PATIENT
  Age: 60 Year
  Sex: Female

DRUGS (6)
  1. CITALOPRAM 20MG [Suspect]
     Dosage: 20MG ONCE DAILY
  2. LISINOPRIL [Suspect]
     Indication: HYPERTENSION
     Dosage: 10MG ONCE DAILY
     Dates: start: 20060614
  3. AMITRIPTYLINE HCL [Concomitant]
  4. ATORVASTATIN CALCIUM [Concomitant]
  5. BENDROFLUMETHIAZIDE [Concomitant]
  6. PROPRANOLOL [Concomitant]

REACTIONS (1)
  - ANGIONEUROTIC OEDEMA [None]
